FAERS Safety Report 10236404 (Version 1)
Quarter: 2014Q2

REPORT INFORMATION
  Report Type: Spontaneous
  Country: US (occurrence: US)
  Receive Date: 20140613
  Receipt Date: 20140613
  Transmission Date: 20141212
  Serious: No
  Sender: FDA-Public Use
  Company Number: US-GILEAD-2014-0105065

PATIENT
  Age: 50 Year
  Sex: Male

DRUGS (3)
  1. SOVALDI [Suspect]
     Indication: HEPATITIS C
     Dosage: 400 MG, QD
     Route: 048
     Dates: start: 20140608
  2. RIBAVIRIN [Concomitant]
  3. PEGASYS [Concomitant]

REACTIONS (2)
  - Malaise [Unknown]
  - Fatigue [Unknown]
